FAERS Safety Report 16162254 (Version 2)
Quarter: 2019Q2

REPORT INFORMATION
  Report Type: Spontaneous
  Country: PT (occurrence: PT)
  Receive Date: 20190405
  Receipt Date: 20190514
  Transmission Date: 20190711
  Serious: Yes (Life-Threatening, Other)
  Sender: FDA-Public Use
  Company Number: PT-MYLANLABS-2019M1031847

PATIENT
  Age: 32 Year
  Sex: Male

DRUGS (17)
  1. STAVUDINE. [Suspect]
     Active Substance: STAVUDINE
     Indication: HIV INFECTION
     Dosage: UNK,1 ML OF TRIAMCINOLONE 40 MG INJECTED
     Route: 065
  2. GABAPENTIN. [Suspect]
     Active Substance: GABAPENTIN
     Indication: CHRONIC HEPATITIS C
  3. DOXORUBICIN [Suspect]
     Active Substance: DOXORUBICIN
     Indication: CHRONIC HEPATITIS C
     Dosage: UNK,1 ML OF TRIAMCINOLONE 40 MG INJECTED
     Route: 065
  4. METHADONE [Suspect]
     Active Substance: METHADONE HYDROCHLORIDE
     Indication: HEPATITIS C
  5. EFAVIRENZ. [Suspect]
     Active Substance: EFAVIRENZ
     Indication: HIV INFECTION
     Dosage: UNK,1 ML OF TRIAMCINOLONE 40 MG INJECTED
     Route: 065
  6. STAVUDINE. [Suspect]
     Active Substance: STAVUDINE
     Indication: CHRONIC HEPATITIS C
  7. DOXORUBICIN [Suspect]
     Active Substance: DOXORUBICIN
     Indication: HEPATITIS C
  8. METHADONE [Suspect]
     Active Substance: METHADONE HYDROCHLORIDE
     Indication: CHRONIC HEPATITIS C
     Dosage: UNK,1 ML OF TRIAMCINOLONE 40 MG INJECTED
     Route: 065
  9. LAMIVUDINE. [Suspect]
     Active Substance: LAMIVUDINE
     Indication: HEPATITIS C
     Dosage: UNK,1 ML OF TRIAMCINOLONE 40 MG INJECTED
     Route: 065
  10. EFAVIRENZ. [Suspect]
     Active Substance: EFAVIRENZ
     Indication: CHRONIC HEPATITIS C
  11. STAVUDINE. [Suspect]
     Active Substance: STAVUDINE
     Indication: HEPATITIS C
  12. DOXORUBICIN [Suspect]
     Active Substance: DOXORUBICIN
     Indication: HIV INFECTION
  13. METHADONE [Suspect]
     Active Substance: METHADONE HYDROCHLORIDE
     Indication: HIV INFECTION
  14. DIDANOSINE. [Suspect]
     Active Substance: DIDANOSINE
     Indication: HIV INFECTION
     Dosage: 1 ML OF TRIAMCINOLONE 40 MG INJECTED
  15. DIDANOSINE. [Suspect]
     Active Substance: DIDANOSINE
     Indication: CHRONIC HEPATITIS C
  16. EFAVIRENZ. [Suspect]
     Active Substance: EFAVIRENZ
     Indication: HEPATITIS C
  17. GABAPENTIN. [Suspect]
     Active Substance: GABAPENTIN
     Indication: HIV INFECTION
     Dosage: 1 ML OF TRIAMCINOLONE 40 MG INJECTED
     Route: 065

REACTIONS (2)
  - Drug-induced liver injury [Unknown]
  - Hepatic fibrosis [Unknown]
